FAERS Safety Report 4596454-0 (Version None)
Quarter: 2005Q1

REPORT INFORMATION
  Report Type: 
  Country: None (occurrence: None)
  Receive Date: 20050228
  Receipt Date: 20050211
  Transmission Date: 20050727
  Serious: Yes (Hospitalization)
  Sender: FDA-Public Use
  Company Number: S05-FRA-00732-01

PATIENT
  Age: 79 Year
  Sex: Female

DRUGS (11)
  1. CITALOPRAM HYDROBROMIDE [Suspect]
     Indication: DEPRESSION
     Dosage: 1 QD PO
     Route: 048
  2. KARDEGIC (ACETYLSALICYLATE LYSINE) [Suspect]
     Dosage: 1 QD PO
     Route: 048
     Dates: end: 20050116
  3. PLAVIX [Suspect]
     Indication: ACUTE MYOCARDIAL INFARCTION
     Dosage: 1 QD PO
     Route: 048
     Dates: end: 20050116
  4. METOPROLOL TARTRATE [Concomitant]
  5. ZESTRIL [Concomitant]
  6. DEPAKOTE [Concomitant]
  7. CORVASAL (MOLSIDOMINE) [Concomitant]
  8. NOCTRAN [Concomitant]
  9. PRAVASTATIN [Concomitant]
  10. ATARAX [Concomitant]
  11. ACETAMINOPHEN [Concomitant]

REACTIONS (11)
  - ACTIVATED PARTIAL THROMBOPLASTIN TIME ABNORMAL [None]
  - BLOOD UREA INCREASED [None]
  - COLITIS ISCHAEMIC [None]
  - DRUG INTERACTION [None]
  - GASTROINTESTINAL NECROSIS [None]
  - HAEMATOMA [None]
  - HAEMOGLOBIN DECREASED [None]
  - LABORATORY TEST ABNORMAL [None]
  - LARGE INTESTINAL ULCER [None]
  - PLATELET COUNT INCREASED [None]
  - RECTAL HAEMORRHAGE [None]
